FAERS Safety Report 13869242 (Version 9)
Quarter: 2018Q1

REPORT INFORMATION
  Report Type: Report from Study
  Country: US (occurrence: US)
  Receive Date: 20170815
  Receipt Date: 20180131
  Transmission Date: 20180508
  Serious: Yes (Other)
  Sender: FDA-Public Use
  Company Number: US-PFIZER INC-2017349193

PATIENT
  Age: 56 Year
  Sex: Female

DRUGS (4)
  1. IBRANCE [Suspect]
     Active Substance: PALBOCICLIB
     Dosage: 75 MG, DAILY
     Route: 048
     Dates: start: 20170929
  2. IBRANCE [Suspect]
     Active Substance: PALBOCICLIB
     Dosage: 75 MG, DAILY
     Route: 048
     Dates: start: 20180113
  3. IBRANCE [Suspect]
     Active Substance: PALBOCICLIB
     Indication: BREAST CANCER
     Dosage: 75 MG, DAILY
     Route: 048
     Dates: start: 20170808, end: 20170905
  4. FASLODEX [Suspect]
     Active Substance: FULVESTRANT
     Dosage: UNK
     Dates: start: 20170929

REACTIONS (16)
  - Headache [Unknown]
  - Weight increased [Unknown]
  - Abdominal pain [Unknown]
  - Peripheral swelling [Unknown]
  - Pain [Unknown]
  - Petechiae [Unknown]
  - Weight decreased [Unknown]
  - Tumour marker increased [Unknown]
  - Energy increased [Unknown]
  - Hyperkalaemia [Unknown]
  - Ascites [Unknown]
  - Constipation [Unknown]
  - Nausea [Unknown]
  - Hyponatraemia [Unknown]
  - Dyskinesia [Unknown]
  - Hair growth abnormal [Unknown]

NARRATIVE: CASE EVENT DATE: 2017
